FAERS Safety Report 16082880 (Version 1)
Quarter: 2019Q1

REPORT INFORMATION
  Report Type: Spontaneous
  Country: US (occurrence: US)
  Receive Date: 20190318
  Receipt Date: 20190318
  Transmission Date: 20190418
  Serious: No
  Sender: FDA-Public Use
  Company Number: US-AUROBINDO-AUR-APL-2018-062973

PATIENT

DRUGS (1)
  1. ETOMIDATE INJECTION 40MG/20ML USP [Suspect]
     Active Substance: ETOMIDATE
     Indication: SEDATION
     Dosage: 30 MILLIGRAM
     Route: 042

REACTIONS (1)
  - Drug ineffective [Unknown]
